FAERS Safety Report 9769108 (Version 2)
Quarter: 2013Q4

REPORT INFORMATION
  Report Type: Spontaneous
  Country: US (occurrence: US)
  Receive Date: 20131218
  Receipt Date: 20131218
  Transmission Date: 20140711
  Serious: No
  Sender: FDA-Public Use
  Company Number: 2012SP000393

PATIENT
  Age: 51 Year
  Sex: 0

DRUGS (8)
  1. VANCOMYCIN [Suspect]
  2. ZITHROMAX [Suspect]
  3. RIFAMPICIN [Suspect]
  4. HYDROCHLOROTHIAZIDE [Suspect]
  5. CODEINE [Suspect]
  6. ISONIAZID [Suspect]
  7. CINOBAC [Suspect]
  8. PROMETHAZINE HYDROCHLORIDE [Suspect]

REACTIONS (1)
  - Hypersensitivity [Unknown]
